FAERS Safety Report 7010034-9 (Version None)
Quarter: 2010Q3

REPORT INFORMATION
  Report Type: 
  Country: None (occurrence: None)
  Receive Date: 20100923
  Receipt Date: 20100913
  Transmission Date: 20110219
  Serious: Yes (Other)
  Sender: FDA-Public Use
  Company Number: GR-BAXTER-2010BH023706

PATIENT
  Age: 60 Year
  Sex: Female
  Weight: 78 kg

DRUGS (3)
  1. CYCLOPHOSPHAMIDE [Suspect]
     Indication: BREAST CANCER
     Route: 042
     Dates: start: 20070306, end: 20070403
  2. METHOTREXATE SODIUM [Suspect]
     Indication: BREAST CANCER
     Route: 042
     Dates: start: 20070306, end: 20070403
  3. FLUOROURACIL [Suspect]
     Indication: BREAST CANCER
     Route: 042
     Dates: start: 20070306, end: 20070403

REACTIONS (1)
  - VENOUS THROMBOSIS [None]
